FAERS Safety Report 4883422-4 (Version None)
Quarter: 2006Q1

REPORT INFORMATION
  Report Type: 
  Country: None (occurrence: None)
  Receive Date: 20060118
  Receipt Date: 20050317
  Transmission Date: 20060701
  Serious: Yes (Hospitalization, Disabling)
  Sender: FDA-Public Use
  Company Number: US-MERCK-0503USA03472

PATIENT
  Age: 57 Year
  Sex: Male
  Weight: 84 kg

DRUGS (16)
  1. CLARITIN [Concomitant]
     Route: 065
  2. NASONEX [Concomitant]
     Route: 065
  3. VIOXX [Suspect]
     Indication: ARTHRALGIA
     Route: 048
     Dates: start: 20020101, end: 20040901
  4. VIOXX [Suspect]
     Route: 048
     Dates: start: 20020101, end: 20040901
  5. VIOXX [Suspect]
     Route: 048
  6. VICODIN [Concomitant]
     Route: 065
  7. ZETIA [Concomitant]
     Route: 065
  8. AMBIEN [Concomitant]
     Route: 065
  9. AVELOX [Concomitant]
     Route: 065
  10. ATENOLOL [Concomitant]
     Route: 065
  11. SINGULAIR [Concomitant]
     Route: 065
  12. LIPITOR [Concomitant]
     Route: 065
  13. BENAZEPRIL HYDROCHLORIDE [Concomitant]
     Route: 065
  14. ASPIRIN [Concomitant]
     Route: 065
  15. ZOCOR [Concomitant]
     Route: 065
  16. VITAMINS (UNSPECIFIED) [Concomitant]
     Route: 065

REACTIONS (8)
  - ABDOMINAL PAIN [None]
  - CHEST DISCOMFORT [None]
  - CHEST PAIN [None]
  - CORONARY ARTERY DISEASE [None]
  - MUSCULOSKELETAL CHEST PAIN [None]
  - OSTEOARTHRITIS [None]
  - SYNCOPE [None]
  - TRANSIENT ISCHAEMIC ATTACK [None]
